FAERS Safety Report 8209421-2 (Version None)
Quarter: 2012Q1

REPORT INFORMATION
  Report Type: 
  Country: None (occurrence: None)
  Receive Date: 20120314
  Receipt Date: 20120309
  Transmission Date: 20120608
  Serious: Yes (Other)
  Sender: FDA-Public Use
  Company Number: BR-PFIZER INC-2012014286

PATIENT
  Age: 55 Year
  Sex: Female
  Weight: 85.8 kg

DRUGS (5)
  1. PHARMATON [Concomitant]
     Indication: VITAMIN SUPPLEMENTATION
     Dosage: UNK
  2. VARENICLINE TARTRATE [Suspect]
     Indication: SMOKING CESSATION THERAPY
     Dosage: UNK
     Route: 048
     Dates: start: 20111206
  3. VARENICLINE TARTRATE [Suspect]
     Dosage: 1 MG, 2X/DAY
     Route: 048
     Dates: end: 20120129
  4. SERTRALINE [Concomitant]
     Indication: ANTIDEPRESSANT THERAPY
     Dosage: 50 MG, 1X/DAY
     Dates: start: 20110401
  5. ALPRAZOLAM [Concomitant]
     Indication: ANXIOLYTIC THERAPY
     Dosage: 1 MG, 1X/DAY
     Dates: start: 20110401

REACTIONS (8)
  - SWELLING [None]
  - INFECTION [None]
  - JOINT SWELLING [None]
  - OSTEOARTHRITIS [None]
  - OEDEMA PERIPHERAL [None]
  - ASTHENIA [None]
  - ARTHRITIS [None]
  - RHEUMATOID ARTHRITIS [None]
